FAERS Safety Report 18283243 (Version 1)
Quarter: 2020Q3

REPORT INFORMATION
  Report Type: Report from Study
  Country: US (occurrence: US)
  Receive Date: 20200918
  Receipt Date: 20200918
  Transmission Date: 20201103
  Serious: No
  Sender: FDA-Public Use
  Company Number: NVSC2020US254489

PATIENT
  Sex: Female

DRUGS (2)
  1. COSENTYX [Suspect]
     Active Substance: SECUKINUMAB
     Indication: PSORIASIS
     Dosage: 300 MG, QW, BENEATH THE SKIN USUALLY VIA INJECTION
     Route: 058
     Dates: start: 20200604
  2. COSENTYX [Suspect]
     Active Substance: SECUKINUMAB
     Dosage: 150 MG, UNKNOWN, 2ND LOADING DOSE
     Route: 058
     Dates: start: 20200611

REACTIONS (2)
  - Incorrect dose administered [Unknown]
  - Gastric disorder [Unknown]
